FAERS Safety Report 7880776-1 (Version None)
Quarter: 2011Q4

REPORT INFORMATION
  Report Type: 
  Country: None (occurrence: None)
  Receive Date: 20111101
  Receipt Date: 20111028
  Transmission Date: 20120403
  Serious: Yes (Death, Other)
  Sender: FDA-Public Use
  Company Number: PHHY2009NL67040

PATIENT
  Sex: Male

DRUGS (7)
  1. SANDOSTATIN LAR [Suspect]
     Dosage: 30 MG, ONCE PER 4 WEEKS
     Dates: start: 20090826, end: 20090826
  2. LASIX [Concomitant]
     Dosage: 40 MG, ONCE DAILY
     Route: 065
  3. ALDACTONE [Concomitant]
     Dosage: 25 MG, ONCE DAILY
     Route: 065
  4. ANTIARRHYTHMICS [Concomitant]
     Route: 065
  5. SANDOSTATIN LAR [Suspect]
     Indication: CARCINOID TUMOUR
     Dosage: 30 MG, ONCE PER 4 WEEKS
     Route: 030
     Dates: start: 20070305
  6. DIGOXIN [Concomitant]
     Dosage: 0.125 MG, ONCE DAILY
     Route: 065
  7. NEXIUM [Concomitant]
     Dosage: 40 MG, ONCE DAILY
     Route: 065

REACTIONS (8)
  - LIVER FUNCTION TEST ABNORMAL [None]
  - NEOPLASM MALIGNANT [None]
  - CARDIAC DISORDER [None]
  - SYNCOPE [None]
  - LOSS OF CONSCIOUSNESS [None]
  - GASTRIC HAEMORRHAGE [None]
  - ANAEMIA [None]
  - ATRIAL FIBRILLATION [None]
